FAERS Safety Report 10875587 (Version 1)
Quarter: 2015Q1

REPORT INFORMATION
  Report Type: Spontaneous
  Country: US (occurrence: US)
  Receive Date: 20150227
  Receipt Date: 20150227
  Transmission Date: 20150721
  Serious: Yes (Other)
  Sender: FDA-Public Use
  Company Number: US-AMGEN-USASP2014027367

PATIENT
  Age: 43 Year
  Sex: Female

DRUGS (1)
  1. ENBREL [Suspect]
     Active Substance: ETANERCEPT
     Indication: RHEUMATOID ARTHRITIS
     Dosage: 50 MG, QWK
     Route: 058
     Dates: start: 201311, end: 201403

REACTIONS (5)
  - Dyspnoea [Unknown]
  - Peripheral swelling [Unknown]
  - Drug ineffective [Unknown]
  - Throat tightness [Unknown]
  - Dysphagia [Unknown]

NARRATIVE: CASE EVENT DATE: 201402
